FAERS Safety Report 17193676 (Version 1)
Quarter: 2019Q4

REPORT INFORMATION
  Report Type: Spontaneous
  Country: PL (occurrence: PL)
  Receive Date: 20191223
  Receipt Date: 20191223
  Transmission Date: 20200122
  Serious: Yes (Other)
  Sender: FDA-Public Use
  Company Number: PL-JNJFOC-20191234278

PATIENT
  Age: 68 Year
  Sex: Male

DRUGS (10)
  1. TRAMADOL/PARACETAMOL [Suspect]
     Active Substance: ACETAMINOPHEN\TRAMADOL
     Dosage: 1 DF, EVERY 6 HRS
     Route: 065
  2. AMITRIPTYLINE [Suspect]
     Active Substance: AMITRIPTYLINE
     Dosage: 10 MG, UNK
     Route: 065
  3. TRAMADOL/PARACETAMOL [Suspect]
     Active Substance: ACETAMINOPHEN\TRAMADOL
     Indication: PAIN IN EXTREMITY
     Dosage: 1 DF, UNK
     Route: 065
  4. AMITRIPTYLINE [Suspect]
     Active Substance: AMITRIPTYLINE
     Indication: PAIN IN EXTREMITY
     Dosage: 10 MG, UNK
     Route: 065
  5. BENFOTIAMINE [Suspect]
     Active Substance: BENFOTIAMINE
     Indication: PAIN IN EXTREMITY
     Dosage: 150 MG, 1/DAY
     Route: 065
  6. ALPHA LIPOIC ACID [Suspect]
     Active Substance: .ALPHA.-LIPOIC ACID
     Indication: PAIN IN EXTREMITY
     Dosage: 600 MG, 1/DAY
     Route: 048
  7. AMITRIPTYLINE [Suspect]
     Active Substance: AMITRIPTYLINE
     Dosage: 25 MG, UNK
     Route: 065
  8. GABAPENTIN. [Suspect]
     Active Substance: GABAPENTIN
     Indication: PAIN IN EXTREMITY
     Dosage: 300 MG, 3/DAY
     Route: 065
  9. GABAPENTIN. [Suspect]
     Active Substance: GABAPENTIN
     Dosage: 300 MG, 1/DAY
     Route: 065
  10. ALPHA LIPOIC ACID [Suspect]
     Active Substance: .ALPHA.-LIPOIC ACID
     Indication: PAIN IN EXTREMITY
     Dosage: 600 MG, 1/DAY
     Route: 042

REACTIONS (10)
  - Fatigue [Unknown]
  - Constipation [Unknown]
  - Paraesthesia [Unknown]
  - Diabetic neuropathy [Unknown]
  - Muscle contractions involuntary [Unknown]
  - Disturbance in attention [Unknown]
  - Dry mouth [Unknown]
  - Glycosylated haemoglobin increased [Unknown]
  - Areflexia [Unknown]
  - Drug ineffective [Unknown]
